FAERS Safety Report 7957435-X (Version None)
Quarter: 2011Q4

REPORT INFORMATION
  Report Type: 
  Country: None (occurrence: None)
  Receive Date: 20111130
  Receipt Date: 20111128
  Transmission Date: 20120403
  Serious: Yes (Life-Threatening)
  Sender: FDA-Public Use
  Company Number: SP05362

PATIENT
  Age: 45 Year
  Sex: Male

DRUGS (1)
  1. VISICOL [Suspect]
     Indication: BOWEL PREPARATION
     Dosage: (45 GM), ORAL
     Route: 048
     Dates: start: 20111120, end: 20111120

REACTIONS (2)
  - OESOPHAGEAL RUPTURE [None]
  - PNEUMOMEDIASTINUM [None]
